FAERS Safety Report 16939423 (Version 6)
Quarter: 2020Q1

REPORT INFORMATION
  Report Type: Report from Study
  Country: JP (occurrence: JP)
  Receive Date: 20191021
  Receipt Date: 20200123
  Transmission Date: 20200409
  Serious: Yes (Death, Life-Threatening, Hospitalization, Disabling)
  Sender: FDA-Public Use
  Company Number: JP-GILEAD-2019-0432456

PATIENT
  Age: 58 Year
  Sex: Male

DRUGS (14)
  1. LASIX [Concomitant]
     Active Substance: FUROSEMIDE
     Indication: DISEASE COMPLICATION
     Route: 048
     Dates: end: 20191024
  2. LIFOROS [Concomitant]
     Active Substance: LACTULOSE
     Indication: DISEASE COMPLICATION
     Route: 048
     Dates: end: 20191024
  3. TAKEPRON [Concomitant]
     Active Substance: LANSOPRAZOLE
     Indication: DISEASE COMPLICATION
     Route: 048
     Dates: end: 20191025
  4. SAMSCA [Concomitant]
     Active Substance: TOLVAPTAN
     Route: 048
     Dates: end: 20191024
  5. RIFXIMA [Concomitant]
     Active Substance: RIFAXIMIN
     Indication: DISEASE COMPLICATION
     Route: 048
     Dates: end: 20191024
  6. ALDACTONE A [Concomitant]
     Active Substance: SPIRONOLACTONE
     Indication: DISEASE COMPLICATION
     Route: 048
     Dates: end: 20191024
  7. REMITCH [Concomitant]
     Active Substance: NALFURAFINE HYDROCHLORIDE
     Indication: DISEASE COMPLICATION
     Route: 048
     Dates: end: 20191024
  8. ALESION [Concomitant]
     Active Substance: EPINASTINE HYDROCHLORIDE
     Indication: DISEASE COMPLICATION
     Route: 048
     Dates: end: 20191024
  9. MAINTATE [Concomitant]
     Active Substance: BISOPROLOL FUMARATE
     Indication: PROPHYLAXIS
     Route: 048
     Dates: end: 20191024
  10. SAMSCA [Concomitant]
     Active Substance: TOLVAPTAN
     Indication: DISEASE COMPLICATION
     Dosage: UNK
  11. SOFOSBUVIR W/VELPATASVIR [Suspect]
     Active Substance: SOFOSBUVIR\VELPATASVIR
     Indication: HEPATIC CIRRHOSIS
     Dosage: 1 DOSAGE FORM, QD
     Route: 048
     Dates: start: 20190904, end: 20190924
  12. URSO [Concomitant]
     Active Substance: URSODIOL
     Indication: HEPATITIS C
     Route: 048
     Dates: end: 20191024
  13. AMINOLEBAN EN [Concomitant]
     Active Substance: UNSPECIFIED INGREDIENT
     Indication: HEPATIC CIRRHOSIS
     Route: 048
     Dates: end: 20191024
  14. ZINC. [Concomitant]
     Active Substance: ZINC
     Indication: DISEASE COMPLICATION
     Route: 048
     Dates: end: 20191024

REACTIONS (1)
  - Hepatorenal syndrome [Fatal]

NARRATIVE: CASE EVENT DATE: 20190912
